FAERS Safety Report 22270700 (Version 1)
Quarter: 2023Q2

REPORT INFORMATION
  Report Type: Spontaneous
  Country: JP (occurrence: JP)
  Receive Date: 20230501
  Receipt Date: 20230501
  Transmission Date: 20230722
  Serious: Yes (Hospitalization, Other)
  Sender: FDA-Public Use
  Company Number: JP-MYLANLABS-2023M1044737

PATIENT
  Age: 8 Year
  Sex: Female

DRUGS (1)
  1. ANHIBA [Suspect]
     Active Substance: ACETAMINOPHEN
     Indication: Product used for unknown indication
     Dosage: UNK
     Route: 065
     Dates: start: 202204, end: 202204

REACTIONS (1)
  - Tubulointerstitial nephritis [Unknown]
